FAERS Safety Report 9000350 (Version 2)
Quarter: 2013Q1

REPORT INFORMATION
  Report Type: Spontaneous
  Country: US (occurrence: US)
  Receive Date: 20130107
  Receipt Date: 20130123
  Transmission Date: 20140127
  Serious: Yes (Hospitalization)
  Sender: FDA-Public Use
  Company Number: US-BIOGENIDEC-2013BI000010

PATIENT
  Age: 48 Year
  Sex: Female
  Weight: 95 kg

DRUGS (2)
  1. AVONEX [Suspect]
     Indication: MULTIPLE SCLEROSIS
     Route: 030
  2. STEROIDS (NOS) [Concomitant]

REACTIONS (1)
  - Dysgeusia [Recovered/Resolved]
